FAERS Safety Report 12583742 (Version 2)
Quarter: 2016Q4

REPORT INFORMATION
  Report Type: Spontaneous
  Country: US (occurrence: US)
  Receive Date: 20160722
  Receipt Date: 20161006
  Transmission Date: 20170207
  Serious: No
  Sender: FDA-Public Use
  Company Number: US-009507513-1607USA009152

PATIENT
  Sex: Female
  Weight: 63.49 kg

DRUGS (1)
  1. ZOCOR [Suspect]
     Active Substance: SIMVASTATIN
     Indication: HYPERLIPIDAEMIA
     Dosage: 1/1, DAILY
     Route: 048
     Dates: start: 2002

REACTIONS (2)
  - Drug hypersensitivity [Unknown]
  - Myalgia [Unknown]
